FAERS Safety Report 11872383 (Version 1)
Quarter: 2015Q4

REPORT INFORMATION
  Report Type: Spontaneous
  Country: SE (occurrence: SE)
  Receive Date: 20151228
  Receipt Date: 20151228
  Transmission Date: 20160305
  Serious: Yes (Other)
  Sender: FDA-Public Use
  Company Number: SE-PFIZER INC-2015464204

PATIENT
  Age: 51 Year
  Sex: Male

DRUGS (9)
  1. OMEPRAZOLE. [Concomitant]
     Active Substance: OMEPRAZOLE
     Dates: start: 2009
  2. LANTUS [Concomitant]
     Active Substance: INSULIN GLARGINE
     Dates: start: 2009
  3. VALSARTAN. [Concomitant]
     Active Substance: VALSARTAN
     Dates: start: 2009
  4. SIMVASTATIN. [Concomitant]
     Active Substance: SIMVASTATIN
     Dates: start: 2009
  5. ALVEDON [Concomitant]
     Active Substance: ACETAMINOPHEN
  6. LYRICA [Suspect]
     Active Substance: PREGABALIN
     Dosage: 150 MG 1X 3-4 ^TABLETS^ DAILY
     Route: 048
     Dates: start: 20110504, end: 20150720
  7. METFORMIN [Concomitant]
     Active Substance: METFORMIN HYDROCHLORIDE
     Dates: start: 2009
  8. NOVORAPID [Concomitant]
     Active Substance: INSULIN ASPART
     Dates: start: 2009
  9. VICTOZA [Concomitant]
     Active Substance: LIRAGLUTIDE

REACTIONS (2)
  - Weight decreased [Unknown]
  - Diabetes mellitus inadequate control [Recovered/Resolved]
